FAERS Safety Report 6290160-2 (Version None)
Quarter: 2009Q3

REPORT INFORMATION
  Report Type: 
  Country: None (occurrence: None)
  Receive Date: 20090730
  Receipt Date: 20081217
  Transmission Date: 20100115
  Serious: No
  Sender: FDA-Public Use
  Company Number: US-BRISTOL-MYERS SQUIBB COMPANY-14447387

PATIENT
  Age: 22 Year
  Sex: Male
  Weight: 127 kg

DRUGS (3)
  1. COUMADIN [Suspect]
     Dosage: ALSO TAKEN FROM DEC-2007.
     Dates: start: 20081101
  2. LOVENOX [Suspect]
     Indication: DEEP VEIN THROMBOSIS
     Route: 058
     Dates: start: 20081101
  3. LOVENOX [Suspect]
     Indication: PULMONARY EMBOLISM
     Route: 058
     Dates: start: 20081101

REACTIONS (2)
  - INJECTION SITE HAEMATOMA [None]
  - INJECTION SITE PAIN [None]
